FAERS Safety Report 6806848-8 (Version None)
Quarter: 2010Q2

REPORT INFORMATION
  Report Type: 
  Country: None (occurrence: None)
  Receive Date: 20100629
  Receipt Date: 20080610
  Transmission Date: 20101027
  Serious: No
  Sender: FDA-Public Use
  Company Number: US-PFIZER INC-2008031627

PATIENT
  Sex: Male
  Weight: 82.7 kg

DRUGS (8)
  1. VIAGRA [Suspect]
     Indication: ERECTILE DYSFUNCTION
     Dates: start: 20020101
  2. PAXIL [Concomitant]
  3. TOPAMAX [Concomitant]
  4. ATIVAN [Concomitant]
  5. HYDROXYZINE [Concomitant]
  6. LITHIUM [Concomitant]
  7. ZOCOR [Concomitant]
     Indication: BLOOD CHOLESTEROL INCREASED
  8. LAMOTRIGINE [Concomitant]

REACTIONS (1)
  - DRUG EFFECT DECREASED [None]
